FAERS Safety Report 25747253 (Version 2)
Quarter: 2025Q4

REPORT INFORMATION
  Report Type: Report from Study
  Country: CA (occurrence: CA)
  Receive Date: 20250901
  Receipt Date: 20251103
  Transmission Date: 20260118
  Serious: Yes (Hospitalization)
  Sender: JOHNSON AND JOHNSON
  Company Number: CA-JNJFOC-20250834485

PATIENT
  Age: 61 Year
  Sex: Male
  Weight: 90 kg

DRUGS (1)
  1. REMICADE [Suspect]
     Active Substance: INFLIXIMAB
     Indication: Psoriasis
     Route: 041
     Dates: start: 20110321

REACTIONS (3)
  - Sepsis [Unknown]
  - Infarction [Unknown]
  - Encephalitis [Unknown]

NARRATIVE: CASE EVENT DATE: 20250821
